FAERS Safety Report 6213524-1 (Version None)
Quarter: 2009Q2

REPORT INFORMATION
  Report Type: 
  Country: None (occurrence: None)
  Receive Date: 20090603
  Receipt Date: 20090522
  Transmission Date: 20091009
  Serious: Yes (Life-Threatening, Hospitalization)
  Sender: FDA-Public Use
  Company Number: DE-SANOFI-SYNTHELABO-A04200900698

PATIENT
  Age: 69 Year
  Sex: Female
  Weight: 60 kg

DRUGS (9)
  1. NEBIVOLOL SANDOZ [Concomitant]
     Indication: HYPERTENSION
     Route: 048
     Dates: start: 20000101
  2. CLOPIDOGREL [Concomitant]
     Indication: ISCHAEMIC HEART DISEASE PROPHYLAXIS
     Route: 048
     Dates: start: 20090226, end: 20090315
  3. IBUPROFEN [Concomitant]
     Indication: PAIN
     Route: 048
     Dates: start: 20090226, end: 20090311
  4. CALCIUM [Concomitant]
     Indication: OSTEOPOROSIS
     Route: 048
     Dates: start: 20030101, end: 20090313
  5. PANTOZOL [Interacting]
     Indication: PROPHYLAXIS AGAINST GASTROINTESTINAL ULCER
     Route: 048
     Dates: start: 20080101
  6. HALOPERIDOL [Interacting]
     Indication: RESTLESSNESS
     Route: 048
     Dates: start: 20070101, end: 20090313
  7. ZOLPIDEM TARTRATE [Suspect]
     Indication: SLEEP DISORDER
     Route: 048
     Dates: start: 20060101, end: 20090313
  8. THEOPHYLLINE [Interacting]
     Indication: CHRONIC OBSTRUCTIVE PULMONARY DISEASE
     Route: 048
     Dates: start: 20050101
  9. RAMIPRIL [Interacting]
     Indication: HYPERTENSION
     Dosage: UNK
     Route: 048
     Dates: start: 20000101, end: 20090315

REACTIONS (9)
  - DRUG INTERACTION [None]
  - DYSARTHRIA [None]
  - DYSPNOEA [None]
  - FEELING HOT [None]
  - HYPERKINESIA [None]
  - HYPONATRAEMIA [None]
  - NAUSEA [None]
  - RHABDOMYOLYSIS [None]
  - TACHYCARDIA [None]
